FAERS Safety Report 5139215-6 (Version None)
Quarter: 2006Q4

REPORT INFORMATION
  Report Type: 
  Country: None (occurrence: None)
  Receive Date: 20061030
  Receipt Date: 20060713
  Transmission Date: 20070319
  Serious: No
  Sender: FDA-Public Use
  Company Number: US-GLAXOSMITHKLINE-A0612209A

PATIENT
  Age: 67 Year
  Sex: Male

DRUGS (5)
  1. ADVAIR HFA [Suspect]
     Indication: EMPHYSEMA
     Dosage: 1PUFF TWICE PER DAY
     Route: 055
     Dates: start: 20060614, end: 20060713
  2. DILTIAZEM HCL [Concomitant]
  3. HYDROCHLOROTHIAZIDE [Concomitant]
  4. ZETIA [Concomitant]
  5. SYNTHROID [Concomitant]

REACTIONS (4)
  - APHONIA [None]
  - CANDIDIASIS [None]
  - DYSPHONIA [None]
  - ORAL MUCOSAL DISORDER [None]
